FAERS Safety Report 5753195-1 (Version None)
Quarter: 2008Q2

REPORT INFORMATION
  Report Type: 
  Country: None (occurrence: None)
  Receive Date: 20080530
  Receipt Date: 20080523
  Transmission Date: 20081010
  Serious: Yes (Hospitalization, Other)
  Sender: FDA-Public Use
  Company Number: FR-BAYER-200810089GPV

PATIENT
  Age: 69 Year
  Sex: Male
  Weight: 52 kg

DRUGS (36)
  1. SORAFENIB [Suspect]
     Indication: NON-SMALL CELL LUNG CANCER
     Dosage: TOTAL DAILY DOSE: 800 MG
     Route: 048
     Dates: start: 20071022, end: 20071219
  2. GEMCITABINE [Suspect]
     Indication: NON-SMALL CELL LUNG CANCER
     Dosage: TOTAL DAILY DOSE: 2100 MG
     Route: 042
     Dates: start: 20071022, end: 20071022
  3. GEMCITABINE [Suspect]
     Dosage: TOTAL DAILY DOSE: 2100 MG
     Route: 042
     Dates: start: 20071112, end: 20071112
  4. GEMCITABINE [Suspect]
     Dosage: TOTAL DAILY DOSE: 2100 MG
     Route: 042
     Dates: start: 20071029, end: 20071029
  5. CISPLATIN [Suspect]
     Indication: NON-SMALL CELL LUNG CANCER
     Dosage: TOTAL DAILY DOSE: 125 MG
     Route: 042
     Dates: start: 20071022, end: 20071022
  6. CISPLATIN [Suspect]
     Dosage: TOTAL DAILY DOSE: 125 MG
     Route: 042
     Dates: start: 20071112, end: 20071112
  7. EMEND [Concomitant]
     Indication: PROPHYLAXIS OF NAUSEA AND VOMITING
     Route: 065
     Dates: start: 20071022, end: 20071022
  8. EMEND [Concomitant]
     Route: 065
     Dates: start: 20071112, end: 20071112
  9. EMEND [Concomitant]
     Route: 065
     Dates: start: 20071023, end: 20071024
  10. EMEND [Concomitant]
     Route: 065
     Dates: start: 20071025, end: 20071112
  11. ZOPHREN [Concomitant]
     Indication: PROPHYLAXIS OF NAUSEA AND VOMITING
     Route: 065
     Dates: start: 20071022, end: 20071022
  12. ZOPHREN [Concomitant]
     Route: 065
     Dates: start: 20071112, end: 20071112
  13. ZOPHREN [Concomitant]
     Route: 065
     Dates: start: 20071029, end: 20071029
  14. SOLU-MEDROL [Concomitant]
     Indication: PROPHYLAXIS OF NAUSEA AND VOMITING
     Route: 065
     Dates: start: 20071022, end: 20071022
  15. SOLU-MEDROL [Concomitant]
     Route: 065
     Dates: start: 20071112, end: 20071112
  16. GLUCOSE [Concomitant]
     Indication: DEHYDRATION
     Route: 065
     Dates: start: 20071022, end: 20071022
  17. GLUCOSE [Concomitant]
     Route: 065
     Dates: start: 20071029, end: 20071029
  18. GLUCOSE [Concomitant]
     Route: 065
     Dates: start: 20071112, end: 20071112
  19. CORTANCYL [Concomitant]
     Indication: PROPHYLAXIS OF NAUSEA AND VOMITING
     Route: 065
     Dates: start: 20071023, end: 20071024
  20. CORTANCYL [Concomitant]
     Route: 065
     Dates: start: 20071204
  21. PRIMPERAN TAB [Concomitant]
     Indication: PROPHYLAXIS OF NAUSEA AND VOMITING
     Route: 065
     Dates: start: 20071023
  22. ACETAMINOPHEN [Concomitant]
     Indication: BONE PAIN
     Route: 065
     Dates: start: 20071022
  23. LEVOTHYROXINE SODIUM [Concomitant]
     Indication: HYPOTHYROIDISM
     Dosage: UNIT DOSE: 150 ?G/ML
     Route: 065
     Dates: start: 20071022
  24. OROCAL D(3) [Concomitant]
     Indication: OSTEOPOROSIS
     Route: 065
     Dates: start: 20071022
  25. LORAZEPAM [Concomitant]
     Indication: ANXIETY
     Route: 065
     Dates: start: 20071022
  26. ALFUZOSIN LP10 [Concomitant]
     Indication: PROSTATIC ADENOMA
     Route: 065
     Dates: start: 20071022
  27. ACETAMINOPHEN [Concomitant]
     Indication: PROPHYLAXIS
     Route: 065
     Dates: start: 20071130
  28. TRIFLUCAN [Concomitant]
     Indication: CANDIDIASIS
     Route: 065
     Dates: start: 20071107, end: 20071112
  29. FUNGIZONE [Concomitant]
     Indication: CANDIDIASIS
     Route: 065
     Dates: start: 20071112
  30. IMODIUM [Concomitant]
     Indication: DIARRHOEA
     Route: 065
     Dates: start: 20071201
  31. BICARBONAT [Concomitant]
     Indication: CANDIDIASIS
     Route: 065
     Dates: start: 20071112
  32. HEXTRIL [Concomitant]
     Indication: CANDIDIASIS
     Route: 065
     Dates: start: 20071112
  33. AMOXICILLIN [Concomitant]
     Indication: BRONCHITIS
     Route: 065
     Dates: start: 20071212
  34. KINESITHERAPY [Concomitant]
     Indication: BRONCHITIS
     Route: 065
     Dates: start: 20071212
  35. FOOD SUPPLEMENTATION [Concomitant]
     Indication: DYSPHAGIA
     Route: 065
     Dates: start: 20071119
  36. FOSAMAX [Concomitant]
     Indication: OSTEOPOROSIS
     Route: 065
     Dates: start: 20071022

REACTIONS (5)
  - ANOREXIA [None]
  - DIARRHOEA [None]
  - DYSPHAGIA [None]
  - GENERAL PHYSICAL HEALTH DETERIORATION [None]
  - HAEMOPTYSIS [None]
